FAERS Safety Report 9564973 (Version 2)
Quarter: 2014Q1

REPORT INFORMATION
  Report Type: Spontaneous
  Country: FI (occurrence: FI)
  Receive Date: 20130930
  Receipt Date: 20140212
  Transmission Date: 20141002
  Serious: Yes (Hospitalization)
  Sender: FDA-Public Use
  Company Number: PHHY2013FI107545

PATIENT
  Sex: Male

DRUGS (2)
  1. TEGRETOL [Suspect]
     Dosage: UNK UKN, UNK MATERNAL DOSE 300 MG
     Route: 064
  2. FOLVITE [Suspect]
     Dosage: UNK UKN, UNK, MATERNAL DOSE 1 MG
     Route: 064

REACTIONS (1)
  - Ascites [Not Recovered/Not Resolved]
